FAERS Safety Report 22396841 (Version 1)
Quarter: 2023Q2

REPORT INFORMATION
  Report Type: Spontaneous
  Country: US (occurrence: US)
  Receive Date: 20230601
  Receipt Date: 20230601
  Transmission Date: 20230721
  Serious: No
  Sender: FDA-Public Use
  Company Number: US-ACADIA PHARMACEUTICALS INC.-ACA-2023-PIM-002092

PATIENT
  Age: 80 Year
  Sex: Female

DRUGS (15)
  1. NUPLAZID [Suspect]
     Active Substance: PIMAVANSERIN TARTRATE
     Dosage: 34 MILLIGRAM, QD
     Route: 065
  2. CLOPIDOGREL [Concomitant]
     Active Substance: CLOPIDOGREL BISULFATE
     Dosage: 75 MILLIGRAM, QD
  3. ASPIRIN [Concomitant]
     Active Substance: ASPIRIN
     Dosage: 75 MILLIGRAM
  4. PROPRANOLOL [Concomitant]
     Active Substance: PROPRANOLOL HYDROCHLORIDE
     Dosage: 40 MILLIGRAM, TID
  5. BROMAZEPAM [Concomitant]
     Active Substance: BROMAZEPAM
     Dosage: 1.5 MG, 4 TIMES DAILY
  6. CLOZAPINE [Concomitant]
     Active Substance: CLOZAPINE
     Dosage: 12.5 MG
  7. CLOZAPINE [Concomitant]
     Active Substance: CLOZAPINE
     Dosage: 75 MG/DAY
  8. DONEPEZIL [Concomitant]
     Active Substance: DONEPEZIL
     Dosage: 5 MILLIGRAM, QD
  9. OXAZEPAM [Concomitant]
     Active Substance: OXAZEPAM
  10. NITRAZEPAM [Concomitant]
     Active Substance: NITRAZEPAM
     Dosage: 7.5 MG/DAY
  11. MELATONIN [Concomitant]
     Active Substance: MELATONIN
     Dosage: 12 MG/DAY
  12. VALPROMIDE [Concomitant]
     Active Substance: VALPROMIDE
     Indication: Emotional disorder
  13. TRAZODONE [Concomitant]
     Active Substance: TRAZODONE HYDROCHLORIDE
     Dosage: 100 MG/DAY
  14. PAROXETINE [Concomitant]
     Active Substance: PAROXETINE
     Indication: Behaviour disorder
     Dosage: UNK
  15. PAROXETINE [Concomitant]
     Active Substance: PAROXETINE
     Indication: Depressed mood
     Dosage: GRADUALLY INCREASED

REACTIONS (1)
  - Drug effective for unapproved indication [Unknown]
